FAERS Safety Report 10376635 (Version 2)
Quarter: 2014Q4

REPORT INFORMATION
  Report Type: Spontaneous
  Country: SE (occurrence: SE)
  Receive Date: 20140811
  Receipt Date: 20141106
  Transmission Date: 20150528
  Serious: Yes (Other)
  Sender: FDA-Public Use
  Company Number: SE-ABBVIE-14P-150-1270539-00

PATIENT
  Sex: Male

DRUGS (1)
  1. ERGENYL [Suspect]
     Active Substance: VALPROIC ACID
     Indication: BRAIN NEOPLASM
     Route: 065
     Dates: end: 20131014

REACTIONS (2)
  - Status epilepticus [Unknown]
  - Off label use [Unknown]
